FAERS Safety Report 7593613-X (Version None)
Quarter: 2011Q3

REPORT INFORMATION
  Report Type: 
  Country: None (occurrence: None)
  Receive Date: 20110706
  Receipt Date: 20110623
  Transmission Date: 20111222
  Serious: Yes (Hospitalization)
  Sender: FDA-Public Use
  Company Number: PHHY2011TW58655

PATIENT
  Age: 74 Year
  Sex: Male

DRUGS (2)
  1. BROMOCRIPTINE MESYLATE [Suspect]
     Dosage: 2.5 MG, QD
  2. BROMOCRIPTINE MESYLATE [Suspect]
     Indication: PARKINSON'S DISEASE
     Dosage: 5 MG PER DAY
     Dates: start: 20100801

REACTIONS (18)
  - HYPERHIDROSIS [None]
  - SOMNOLENCE [None]
  - CONSCIOUSNESS FLUCTUATING [None]
  - AUTONOMIC NERVOUS SYSTEM IMBALANCE [None]
  - BLOOD CREATINE PHOSPHOKINASE INCREASED [None]
  - BLOOD PRESSURE INCREASED [None]
  - RESPIRATORY RATE INCREASED [None]
  - BLOOD LACTATE DEHYDROGENASE INCREASED [None]
  - HYPERTHERMIA [None]
  - METABOLIC ACIDOSIS [None]
  - MUSCLE RIGIDITY [None]
  - HALLUCINATION, VISUAL [None]
  - NEUROLEPTIC MALIGNANT SYNDROME [None]
  - AGITATION [None]
  - ASPARTATE AMINOTRANSFERASE INCREASED [None]
  - LEUKOCYTOSIS [None]
  - SINUS TACHYCARDIA [None]
  - ALANINE AMINOTRANSFERASE INCREASED [None]
